FAERS Safety Report 8990297 (Version 2)
Quarter: 2013Q1

REPORT INFORMATION
  Report Type: Spontaneous
  Country: JP (occurrence: JP)
  Receive Date: 20121228
  Receipt Date: 20130114
  Transmission Date: 20140127
  Serious: Yes (Life-Threatening, Other)
  Sender: FDA-Public Use
  Company Number: JP-ASTRAZENECA-2012SE95956

PATIENT
  Age: 11846 Day
  Sex: Female
  Weight: 74 kg

DRUGS (13)
  1. ANAPEINE [Suspect]
     Indication: EPIDURAL ANAESTHESIA
     Route: 008
     Dates: start: 20121220, end: 20121220
  2. ANAPEINE [Suspect]
     Indication: EPIDURAL ANAESTHESIA
     Dosage: 5ML (10MG)/HR
     Route: 008
     Dates: start: 20121220, end: 20121220
  3. SEVOFLURANE [Concomitant]
     Indication: GENERAL ANAESTHESIA
     Route: 055
     Dates: start: 20121220, end: 20121220
  4. PROPOFOL [Concomitant]
     Indication: GENERAL ANAESTHESIA
     Route: 042
     Dates: start: 20121220, end: 20121220
  5. ULTIVA [Concomitant]
     Indication: ANALGESIC THERAPY
     Route: 042
     Dates: start: 20121220, end: 20121220
  6. ESLAX [Concomitant]
     Indication: HYPOTONIA
     Route: 042
     Dates: start: 20121220, end: 20121220
  7. ESLAX [Concomitant]
     Indication: HYPOTONIA
     Route: 042
     Dates: start: 20121220, end: 20121220
  8. EPHEDRIN [Concomitant]
     Indication: PROCEDURAL HYPOTENSION
     Route: 042
     Dates: start: 20121220, end: 20121220
  9. METHYLERGOMETRINE [Concomitant]
     Indication: UTERINE HYPERTONUS
     Route: 041
     Dates: start: 20121220, end: 20121220
  10. VEEN-D [Concomitant]
     Route: 041
     Dates: end: 20121220
  11. HESPANDER [Concomitant]
     Route: 041
     Dates: start: 20121220, end: 20121220
  12. XYLOCAINE SYRINGE [Concomitant]
     Indication: LOCAL ANAESTHESIA
     Route: 008
     Dates: start: 20121220, end: 20121220
  13. CEFMETAZOLE NA [Concomitant]
     Route: 041
     Dates: start: 20121220, end: 20121220

REACTIONS (2)
  - Anaphylactic shock [Recovered/Resolved]
  - Hypoaesthesia [Recovering/Resolving]
